FAERS Safety Report 22604561 (Version 1)
Quarter: 2023Q2

REPORT INFORMATION
  Report Type: Spontaneous
  Country: CN (occurrence: CN)
  Receive Date: 20230615
  Receipt Date: 20230615
  Transmission Date: 20230722
  Serious: Yes (Other)
  Sender: FDA-Public Use
  Company Number: CN-MLMSERVICE-20230531-4315633-1

PATIENT
  Age: 59 Year
  Sex: Male

DRUGS (4)
  1. CAPECITABINE [Suspect]
     Active Substance: CAPECITABINE
     Indication: Colorectal cancer stage IV
     Dosage: 1.5 G PO BID ON DAYS 1-14 Q3W
     Route: 048
     Dates: start: 201902, end: 2019
  2. OXALIPLATIN [Suspect]
     Active Substance: OXALIPLATIN
     Indication: Colorectal cancer stage IV
     Dosage: ON DAY 1
     Route: 042
     Dates: start: 201902, end: 2019
  3. CAPECITABINE [Suspect]
     Active Substance: CAPECITABINE
     Indication: Metastases to lung
     Dosage: 1.5 G PO BID ON DAYS 1-14 Q3W
     Route: 048
     Dates: start: 201902, end: 2019
  4. OXALIPLATIN [Suspect]
     Active Substance: OXALIPLATIN
     Indication: Metastases to lung
     Dosage: ON DAY 1
     Dates: start: 201902, end: 2019

REACTIONS (5)
  - Hypoaesthesia [Unknown]
  - Myelosuppression [Unknown]
  - Vomiting [Unknown]
  - Nausea [Unknown]
  - Hepatic function abnormal [Unknown]

NARRATIVE: CASE EVENT DATE: 20190101
